FAERS Safety Report 18314880 (Version 1)
Quarter: 2020Q3

REPORT INFORMATION
  Report Type: Spontaneous
  Country: US (occurrence: US)
  Receive Date: 20200925
  Receipt Date: 20200925
  Transmission Date: 20201103
  Serious: Yes (Other)
  Sender: FDA-Public Use
  Company Number: US-PURDUE-USA-2020-0167716

PATIENT

DRUGS (1)
  1. OXYCONTIN [Suspect]
     Active Substance: OXYCODONE HYDROCHLORIDE
     Indication: ANALGESIC THERAPY
     Dosage: UNK
     Route: 048
     Dates: start: 2002, end: 2009

REACTIONS (8)
  - Drug ineffective [Unknown]
  - Tooth disorder [Unknown]
  - Tooth extraction [Unknown]
  - Pain [Unknown]
  - Incorrect dosage administered [Unknown]
  - Tooth erosion [Unknown]
  - Tooth loss [Unknown]
  - Emotional distress [Unknown]
